FAERS Safety Report 7537997-7 (Version None)
Quarter: 2011Q2

REPORT INFORMATION
  Report Type: 
  Country: None (occurrence: None)
  Receive Date: 20110609
  Receipt Date: 20110531
  Transmission Date: 20111010
  Serious: Yes (Hospitalization)
  Sender: FDA-Public Use
  Company Number: US-B.I. PHARMACEUTICALS,INC./RIDGEFIELD-2011-BP-11415BP

PATIENT
  Age: 82 Year
  Sex: Female
  Weight: 58.06 kg

DRUGS (2)
  1. MEDICATION NOT FURTHER SPECIFIRED [Concomitant]
  2. PRADAXA [Suspect]
     Dates: end: 20110407

REACTIONS (4)
  - GASTROINTESTINAL HAEMORRHAGE [None]
  - SYNCOPE [None]
  - GASTRITIS EROSIVE [None]
  - FALL [None]
